FAERS Safety Report 12134997 (Version 2)
Quarter: 2023Q4

REPORT INFORMATION
  Report Type: Spontaneous
  Country: US (occurrence: US)
  Receive Date: 20160301
  Receipt Date: 20231122
  Transmission Date: 20240109
  Serious: Yes (Hospitalization, Other)
  Sender: FDA-Public Use
  Company Number: US-JAZZ-2016-US-003811

PATIENT
  Age: 49 Year
  Sex: Male
  Weight: 101 kg

DRUGS (1)
  1. XYREM [Suspect]
     Active Substance: SODIUM OXYBATE
     Indication: Product used for unknown indication
     Route: 048

REACTIONS (8)
  - Intentional product misuse [Recovered/Resolved]
  - Alkalosis [Recovered/Resolved]
  - Arrhythmia [Recovered/Resolved]
  - Electrolyte imbalance [Recovered/Resolved]
  - Bradycardia [Recovered/Resolved]
  - Coma [Recovered/Resolved]
  - Respiratory depression [Recovered/Resolved]
  - Vomiting [Recovered/Resolved]
